FAERS Safety Report 5213597-9 (Version None)
Quarter: 2007Q1

REPORT INFORMATION
  Report Type: 
  Country: None (occurrence: None)
  Receive Date: 20070119
  Receipt Date: 20070116
  Transmission Date: 20070707
  Serious: Yes (Other)
  Sender: FDA-Public Use
  Company Number: US-BOEHRINGER INGELHEIM PHARMACEUTICALS, INC.-2006-BP-14741PF

PATIENT
  Sex: Female
  Weight: 63.5 kg

DRUGS (10)
  1. SPIRIVA [Suspect]
     Indication: CHRONIC OBSTRUCTIVE PULMONARY DISEASE
     Route: 055
     Dates: end: 20061128
  2. CHANTIX [Suspect]
     Indication: SMOKING CESSATION THERAPY
     Dates: end: 20060101
  3. XANAX [Concomitant]
     Indication: ANXIETY
  4. GLYCOLAX [Concomitant]
     Indication: CONSTIPATION
  5. ICAP [Concomitant]
     Indication: CONSTIPATION
  6. ADVAIR DISKUS 100/50 [Concomitant]
     Indication: CHRONIC OBSTRUCTIVE PULMONARY DISEASE
  7. ALBUTEROL [Concomitant]
     Indication: CHRONIC OBSTRUCTIVE PULMONARY DISEASE
  8. PREVACID [Concomitant]
     Indication: GASTROOESOPHAGEAL REFLUX DISEASE
  9. SINGULAIR [Concomitant]
  10. ZETIA [Concomitant]

REACTIONS (23)
  - BREATH SOUNDS ABNORMAL [None]
  - BRONCHITIS [None]
  - COUGH [None]
  - DRY EYE [None]
  - FACE INJURY [None]
  - FALL [None]
  - GAIT DISTURBANCE [None]
  - HYPOTENSION [None]
  - JOINT SWELLING [None]
  - LIP SWELLING [None]
  - LOWER RESPIRATORY TRACT INFECTION [None]
  - MALAISE [None]
  - MUSCLE DISORDER [None]
  - MYOCARDIAL INFARCTION [None]
  - NASAL OEDEMA [None]
  - PAIN [None]
  - PAIN IN EXTREMITY [None]
  - PNEUMONIA PRIMARY ATYPICAL [None]
  - PRODUCTIVE COUGH [None]
  - PULMONARY CONGESTION [None]
  - PYREXIA [None]
  - TRAUMATIC SHOCK [None]
  - WHEEZING [None]
